FAERS Safety Report 12290924 (Version 1)
Quarter: 2016Q2

REPORT INFORMATION
  Report Type: Spontaneous
  Country: US (occurrence: US)
  Receive Date: 20160421
  Receipt Date: 20160421
  Transmission Date: 20160815
  Serious: Yes (Death, Hospitalization, Other)
  Sender: FDA-Public Use
  Company Number: US-JUBILANT CADISTA PHARMACEUTICALS-2015JUB00196

PATIENT
  Age: 41 Year
  Sex: Female
  Weight: 61.8 kg

DRUGS (6)
  1. VALPROIC ACID. [Suspect]
     Active Substance: VALPROIC ACID
     Route: 048
  2. METHAMPHETAMINE [Concomitant]
     Active Substance: METHAMPHETAMINE
     Route: 065
  3. ASPIRIN. [Concomitant]
     Active Substance: ASPIRIN
     Route: 065
  4. LITHIUM. [Concomitant]
     Active Substance: LITHIUM
     Route: 065
  5. ACETAMINOPHEN. [Concomitant]
     Active Substance: ACETAMINOPHEN
     Route: 065
  6. CARBAMAZEPINE. [Suspect]
     Active Substance: CARBAMAZEPINE
     Route: 048

REACTIONS (7)
  - Haemodynamic instability [Fatal]
  - Electrocardiogram QT prolonged [Unknown]
  - Overdose [Fatal]
  - Cardiac arrest [Recovered/Resolved]
  - Unresponsive to stimuli [Fatal]
  - Brain death [Fatal]
  - Bundle branch block [Unknown]
